FAERS Safety Report 16894913 (Version 1)
Quarter: 2019Q4

REPORT INFORMATION
  Report Type: Spontaneous
  Country: US (occurrence: US)
  Receive Date: 20190814
  Receipt Date: 20190814
  Transmission Date: 20200122
  Serious: Yes (Hospitalization)
  Sender: FDA-Public Use
  Company Number: None

PATIENT
  Age: 46 Year
  Sex: Male
  Weight: 80 kg

DRUGS (1)
  1. CYTARABINE. [Suspect]
     Active Substance: CYTARABINE
     Indication: VASCULITIS
     Dates: start: 20190812

REACTIONS (2)
  - Palpable purpura [None]
  - Hypersensitivity vasculitis [None]

NARRATIVE: CASE EVENT DATE: 20190812
